FAERS Safety Report 25093223 (Version 1)
Quarter: 2025Q1

REPORT INFORMATION
  Report Type: Spontaneous
  Country: JP (occurrence: JP)
  Receive Date: 20250319
  Receipt Date: 20250319
  Transmission Date: 20250409
  Serious: Yes (Other)
  Sender: BAXTER
  Company Number: JP-BAXTER-2025BAX012513

PATIENT
  Age: 7 Decade
  Sex: Female

DRUGS (1)
  1. DOXIL [Suspect]
     Active Substance: DOXORUBICIN HYDROCHLORIDE
     Route: 065

REACTIONS (2)
  - Loss of consciousness [Unknown]
  - Snoring [Unknown]
